FAERS Safety Report 10186454 (Version 1)
Quarter: 2014Q2

REPORT INFORMATION
  Report Type: Spontaneous
  Country: US (occurrence: US)
  Receive Date: 20140521
  Receipt Date: 20140521
  Transmission Date: 20141212
  Serious: No
  Sender: FDA-Public Use
  Company Number: US-ASTRAZENECA-2013SE53550

PATIENT
  Age: 5 Year
  Sex: Male
  Weight: 18.1 kg

DRUGS (1)
  1. PULMICORT FLEXHALER [Suspect]
     Indication: ASTHMA
     Dosage: ONE PUFF AT NIGHT
     Route: 055

REACTIONS (12)
  - Body height below normal [Unknown]
  - Lethargy [Unknown]
  - Ear pain [Unknown]
  - Pain [Unknown]
  - Pyrexia [Unknown]
  - Gastric disorder [Unknown]
  - Rhinorrhoea [Unknown]
  - Pain in extremity [Unknown]
  - Pain in extremity [Unknown]
  - Headache [Unknown]
  - Intentional product misuse [Unknown]
  - Drug dose omission [Unknown]
